FAERS Safety Report 4516662-4 (Version None)
Quarter: 2004Q4

REPORT INFORMATION
  Report Type: 
  Country: None (occurrence: None)
  Receive Date: 20041130
  Receipt Date: 20041115
  Transmission Date: 20050328
  Serious: Yes (Hospitalization)
  Sender: FDA-Public Use
  Company Number: MEDI-0002434

PATIENT
  Age: 16 Month
  Sex: 0
  Weight: 8.65 kg

DRUGS (9)
  1. SYNAGIS [Suspect]
     Indication: ANTIVIRAL PROPHYLAXIS
     Dosage: 130 MG, 1 IN 30 D, INTRAMUSCULAR
     Route: 030
  2. DOMPERIDONE (DOMPERIDONE) [Concomitant]
  3. LANSOPRAZOLE [Concomitant]
  4. DIPYRIDAMOLE [Concomitant]
  5. FUROSEMIDE [Concomitant]
  6. AMILORIDE (AMILORIDE) [Concomitant]
  7. SANIFER [Concomitant]
  8. BUDESONIDE (BUDESONIDE) [Concomitant]
  9. SALBUTAMOL SALBUTAMOL) [Concomitant]

REACTIONS (3)
  - BLOOD PRESSURE DECREASED [None]
  - INJECTION SITE REACTION [None]
  - RASH ERYTHEMATOUS [None]
